FAERS Safety Report 16541033 (Version 1)
Quarter: 2019Q3

REPORT INFORMATION
  Report Type: Spontaneous
  Country: US (occurrence: US)
  Receive Date: 20190708
  Receipt Date: 20190708
  Transmission Date: 20191004
  Serious: No
  Sender: FDA-Public Use
  Company Number: US-CURIUM PHARMACEUTICALS-200500283

PATIENT
  Age: 54 Year
  Sex: Female

DRUGS (2)
  1. ULTRA-TECHNEKOW DTE [Suspect]
     Active Substance: TECHNETIUM TC-99M SODIUM PERTECHNETATE
     Dosage: NUMBER OF SEPARATE DOSAGES: 1
     Route: 042
  2. TECHNETIUM SULFUR COLLOID [Suspect]
     Active Substance: TECHNETIUM TC-99M SULFUR COLLOID
     Dosage: NUMBER OF SEPARATE DOSAGES: 1
     Route: 042

REACTIONS (13)
  - Heart rate increased [Recovered/Resolved]
  - Dysgeusia [Unknown]
  - Fatigue [Not Recovered/Not Resolved]
  - Anosmia [Not Recovered/Not Resolved]
  - Rash [Unknown]
  - Hypersensitivity [Unknown]
  - Swelling of eyelid [Not Recovered/Not Resolved]
  - Erythema [Unknown]
  - Urticaria [Unknown]
  - Visual impairment [Unknown]
  - Parosmia [Unknown]
  - Headache [Recovered/Resolved]
  - Ageusia [Not Recovered/Not Resolved]
